FAERS Safety Report 6556500-1 (Version None)
Quarter: 2010Q1

REPORT INFORMATION
  Report Type: 
  Country: None (occurrence: None)
  Receive Date: 20100128
  Receipt Date: 20100125
  Transmission Date: 20100710
  Serious: Yes (Death, Life-Threatening)
  Sender: FDA-Public Use
  Company Number: JP-ELI_LILLY_AND_COMPANY-JP200912003518

PATIENT
  Age: 66 Year
  Sex: Male

DRUGS (7)
  1. GEMZAR [Suspect]
     Indication: PANCREATIC CARCINOMA
     Route: 042
     Dates: start: 20080101
  2. GEMZAR [Suspect]
     Dosage: 1000 MG, OTHER
     Route: 042
     Dates: start: 20091109, end: 20091207
  3. TAKEPRON [Concomitant]
     Indication: GASTRIC ULCER
     Dosage: 30 MG, DAILY (1/D)
     Route: 048
     Dates: start: 20091019, end: 20091222
  4. ASPIRIN [Concomitant]
     Indication: ANGINA PECTORIS
     Dosage: 100 MG, DAILY (1/D)
     Route: 048
     Dates: start: 20091019, end: 20091222
  5. FUROSEMIDE [Concomitant]
     Indication: ANGINA PECTORIS
     Dosage: 80 MG, DAILY (1/D)
     Route: 048
     Dates: start: 20091019, end: 20091222
  6. ALDACTONE [Concomitant]
     Dosage: 50 MG, DAILY (1/D)
     Route: 048
     Dates: start: 20091109, end: 20091222
  7. PLETAL [Concomitant]
     Dosage: 200 MG, DAILY (1/D)
     Route: 048
     Dates: start: 20091109, end: 20091222

REACTIONS (3)
  - ALTERED STATE OF CONSCIOUSNESS [None]
  - HYPERAMMONAEMIA [None]
  - MALIGNANT NEOPLASM PROGRESSION [None]
